FAERS Safety Report 20548323 (Version 1)
Quarter: 2022Q1

REPORT INFORMATION
  Report Type: Spontaneous
  Country: US (occurrence: US)
  Receive Date: 20220303
  Receipt Date: 20220303
  Transmission Date: 20220423
  Serious: No
  Sender: FDA-Public Use
  Company Number: US-ALLERGAN-2104913US

PATIENT

DRUGS (3)
  1. RESTASIS [Suspect]
     Active Substance: CYCLOSPORINE
     Indication: Atopic keratoconjunctivitis
     Dosage: 2 GTT, BID
     Route: 047
     Dates: start: 202012
  2. REFRESH                            /00007001/ [Concomitant]
     Dosage: UNK, PRN
  3. ALREX                              /00595201/ [Concomitant]
     Dosage: UNK, PRN

REACTIONS (1)
  - Off label use [Unknown]
